FAERS Safety Report 8484980-3 (Version None)
Quarter: 2012Q3

REPORT INFORMATION
  Report Type: 
  Country: None (occurrence: None)
  Receive Date: 20120703
  Receipt Date: 20120628
  Transmission Date: 20120928
  Serious: Yes (Death, Other)
  Sender: FDA-Public Use
  Company Number: US-PFIZER INC-2012147230

PATIENT
  Sex: Female

DRUGS (2)
  1. REVATIO [Suspect]
     Indication: PULMONARY ARTERIAL HYPERTENSION
     Dosage: 20 MG, 3X/DAY
     Dates: start: 20111102
  2. REVATIO [Suspect]
     Dosage: UNK

REACTIONS (4)
  - RENAL FAILURE [None]
  - PULMONARY FIBROSIS [None]
  - SCLERODERMA [None]
  - PULMONARY HYPERTENSION [None]
